FAERS Safety Report 6836518-1 (Version None)
Quarter: 2010Q3

REPORT INFORMATION
  Report Type: 
  Country: None (occurrence: None)
  Receive Date: 20100708
  Receipt Date: 20100701
  Transmission Date: 20110219
  Serious: Yes (Hospitalization)
  Sender: FDA-Public Use
  Company Number: US-WYE-H15929610

PATIENT
  Sex: Female

DRUGS (1)
  1. LORATADINE AND PSEUDOEPHEDRINE SULFATE [Suspect]
     Indication: PRODUCT USED FOR UNKNOWN INDICATION
     Dosage: ORAL,  1.1 TABLET, EXTENDED RELEASE
     Route: 048

REACTIONS (4)
  - AMNESIA [None]
  - DRY MOUTH [None]
  - DYSURIA [None]
  - MOOD ALTERED [None]
